FAERS Safety Report 8677741 (Version 2)
Quarter: 2012Q4

REPORT INFORMATION
  Report Type: 
  Country: US (occurrence: US)
  Receive Date: 20120723
  Receipt Date: 20120903
  Transmission Date: 20130627
  Serious: No
  Sender: FDA-Public Use
  Company Number: US-PFIZER INC-2012174138

PATIENT
  Age: 86 Year
  Sex: Female
  Weight: 78.46 kg

DRUGS (1)
  1. LIPITOR [Suspect]
     Indication: BLOOD CHOLESTEROL INCREASED
     Dosage: 20 mg, 1x/day
     Route: 048

REACTIONS (3)
  - Hearing impaired [Not Recovered/Not Resolved]
  - Body height decreased [Unknown]
  - Hypertension [Unknown]
